FAERS Safety Report 9282284 (Version 3)
Quarter: 2013Q2

REPORT INFORMATION
  Report Type: Spontaneous
  Country: US (occurrence: US)
  Receive Date: 20130510
  Receipt Date: 20130619
  Transmission Date: 20140414
  Serious: Yes (Other)
  Sender: FDA-Public Use
  Company Number: US-PFIZER INC-2013144255

PATIENT
  Age: 58 Year
  Sex: Male
  Weight: 89.8 kg

DRUGS (3)
  1. SUTENT [Suspect]
     Indication: RENAL CELL CARCINOMA STAGE IV
     Dosage: 50 MG, CYCLIC (1X/DAY FOUR WEEKS ON, TWO WEEKS OFF)
     Route: 048
     Dates: start: 20130422, end: 201305
  2. LASIX [Concomitant]
     Indication: HEPATIC CIRRHOSIS
     Dosage: 50 MG, 1X/DAY
  3. SPIRONOLACTONE [Concomitant]
     Indication: HEPATIC CIRRHOSIS
     Dosage: 50 MG, 1X/DAY

REACTIONS (8)
  - Haematemesis [Unknown]
  - White blood cell count decreased [Unknown]
  - Platelet count decreased [Unknown]
  - Haemoglobin decreased [Unknown]
  - Chills [Not Recovered/Not Resolved]
  - Fatigue [Not Recovered/Not Resolved]
  - Decreased appetite [Unknown]
  - Constipation [Unknown]
